FAERS Safety Report 23688445 (Version 4)
Quarter: 2024Q3

REPORT INFORMATION
  Report Type: Report from Study
  Country: EG (occurrence: EG)
  Receive Date: 20240329
  Receipt Date: 20240708
  Transmission Date: 20241017
  Serious: No
  Sender: SANDOZ
  Company Number: EG-SANDOZ-SDZ2024EG027555

PATIENT
  Age: 4 Year
  Sex: Female
  Weight: 18 kg

DRUGS (4)
  1. OMNITROPE [Suspect]
     Active Substance: SOMATROPIN
     Indication: Turner^s syndrome
     Dosage: UNK
     Route: 065
     Dates: start: 20220619
  2. OMNITROPE [Suspect]
     Active Substance: SOMATROPIN
     Indication: Turner^s syndrome
     Dosage: UNK
     Route: 065
     Dates: start: 20220619
  3. UNSPECIFIED INGREDIENT [Concomitant]
     Active Substance: UNSPECIFIED INGREDIENT
     Indication: Nasopharyngitis
     Dosage: UNK
     Route: 065
  4. UNSPECIFIED INGREDIENT [Concomitant]
     Active Substance: UNSPECIFIED INGREDIENT
     Indication: Cough

REACTIONS (5)
  - Nasopharyngitis [Recovered/Resolved]
  - Cough [Unknown]
  - Drug dose omission by device [Unknown]
  - Wrong technique in product usage process [Unknown]
  - Device breakage [Unknown]

NARRATIVE: CASE EVENT DATE: 20220619
